FAERS Safety Report 21012352 (Version 1)
Quarter: 2022Q2

REPORT INFORMATION
  Report Type: Spontaneous
  Country: CA (occurrence: CA)
  Receive Date: 20220627
  Receipt Date: 20220627
  Transmission Date: 20220721
  Serious: Yes (Life-Threatening, Hospitalization, Other)
  Sender: FDA-Public Use
  Company Number: CA-JNJFOC-20220651142

PATIENT
  Age: 29 Year
  Sex: Male
  Weight: 86 kg

DRUGS (4)
  1. INVEGA SUSTENNA [Suspect]
     Active Substance: PALIPERIDONE PALMITATE
     Indication: Substance-induced psychotic disorder
     Route: 030
  2. INVEGA SUSTENNA [Suspect]
     Active Substance: PALIPERIDONE PALMITATE
  3. INVEGA SUSTENNA [Suspect]
     Active Substance: PALIPERIDONE PALMITATE
  4. RISPERIDONE [Concomitant]
     Active Substance: RISPERIDONE

REACTIONS (7)
  - Drug reaction with eosinophilia and systemic symptoms [Unknown]
  - Dysphagia [Unknown]
  - Dystonia [Unknown]
  - Hypersensitivity [Unknown]
  - Leukopenia [Unknown]
  - Neutropenia [Unknown]
  - Tardive dyskinesia [Unknown]
